FAERS Safety Report 7133031-1 (Version None)
Quarter: 2010Q4

REPORT INFORMATION
  Report Type: 
  Country: None (occurrence: None)
  Receive Date: 20101202
  Receipt Date: 20101123
  Transmission Date: 20110411
  Serious: Yes (Hospitalization)
  Sender: FDA-Public Use
  Company Number: A0890978A

PATIENT
  Age: 53 Year
  Sex: Female

DRUGS (1)
  1. ADVAIR [Suspect]
     Indication: PRODUCT USED FOR UNKNOWN INDICATION
     Route: 055
     Dates: start: 20090821

REACTIONS (4)
  - ASTHMA [None]
  - DRUG ABUSE [None]
  - DRUG DEPENDENCE [None]
  - TREATMENT NONCOMPLIANCE [None]
